FAERS Safety Report 23680149 (Version 1)
Quarter: 2024Q1

REPORT INFORMATION
  Report Type: Report from Study
  Country: DK (occurrence: DK)
  Receive Date: 20240327
  Receipt Date: 20240327
  Transmission Date: 20240409
  Serious: Yes (Life-Threatening, Hospitalization)
  Sender: FDA-Public Use
  Company Number: DK-JNJFOC-20240365745

PATIENT
  Age: 87 Year
  Sex: Male

DRUGS (1)
  1. IBRUTINIB [Suspect]
     Active Substance: IBRUTINIB
     Indication: Mantle cell lymphoma
     Route: 048
     Dates: start: 20160719, end: 20210328

REACTIONS (7)
  - Haemothorax [Unknown]
  - Rib fracture [Unknown]
  - Off label use [Unknown]
  - Neutropenia [Unknown]
  - Fall [Unknown]
  - Urinary tract infection [Unknown]
  - Oral fungal infection [Unknown]

NARRATIVE: CASE EVENT DATE: 20200418
